FAERS Safety Report 13049981 (Version 1)
Quarter: 2016Q4

REPORT INFORMATION
  Report Type: Spontaneous
  Country: BR (occurrence: BR)
  Receive Date: 20161221
  Receipt Date: 20161221
  Transmission Date: 20170207
  Serious: Yes (Other)
  Sender: FDA-Public Use
  Company Number: BR-ROCHE-1870378

PATIENT
  Age: 60 Year
  Sex: Female
  Weight: 65 kg

DRUGS (7)
  1. ETOPOSIDE. [Concomitant]
     Active Substance: ETOPOSIDE
     Indication: NON-HODGKIN^S LYMPHOMA
  2. MABTHERA [Suspect]
     Active Substance: RITUXIMAB
     Indication: NON-HODGKIN^S LYMPHOMA
     Dosage: SINGLE DOSE
     Route: 042
     Dates: start: 20161018
  3. MABTHERA [Suspect]
     Active Substance: RITUXIMAB
     Dosage: SINGLE DOSE
     Route: 042
     Dates: start: 20161020
  4. DOXORUBICIN [Concomitant]
     Active Substance: DOXORUBICIN
     Indication: NON-HODGKIN^S LYMPHOMA
  5. PREDNISONE. [Concomitant]
     Active Substance: PREDNISONE
     Indication: NON-HODGKIN^S LYMPHOMA
  6. CYCLOPHOSPHAMIDE. [Concomitant]
     Active Substance: CYCLOPHOSPHAMIDE
     Indication: NON-HODGKIN^S LYMPHOMA
  7. VINCRISTINE [Concomitant]
     Active Substance: VINCRISTINE
     Indication: NON-HODGKIN^S LYMPHOMA

REACTIONS (4)
  - Respiratory failure [Recovered/Resolved]
  - Bronchospasm [Recovered/Resolved]
  - Tachycardia [Recovered/Resolved]
  - Hypertension [Recovered/Resolved]

NARRATIVE: CASE EVENT DATE: 20161018
